FAERS Safety Report 5331501-X (Version None)
Quarter: 2007Q1

REPORT INFORMATION
  Report Type: 
  Country: None (occurrence: None)
  Receive Date: 20070306
  Receipt Date: 20060411
  Transmission Date: 20070707
  Serious: Yes (Hospitalization)
  Sender: FDA-Public Use
  Company Number: A03200602286

PATIENT
  Age: 76 Year
  Sex: Male
  Weight: 92.06 kg

DRUGS (9)
  1. PLAVIX [Suspect]
     Indication: CEREBROVASCULAR ACCIDENT
     Dosage: 75 MG QD - ORAL
     Route: 048
     Dates: start: 20010901, end: 20050501
  2. ASPIRIN [Suspect]
     Dosage: 81 MG QD - ORAL
     Route: 048
     Dates: end: 20050501
  3. FINASTERIDE [Concomitant]
  4. ATENOLOL [Concomitant]
  5. TAMSULOSIN HCL [Concomitant]
  6. VALSARTAN [Concomitant]
  7. DARVOCET-N 100 [Concomitant]
  8. ESOMEPRAZOLE MAGNESIUM [Concomitant]
  9. ALPRAZOLAM [Concomitant]

REACTIONS (4)
  - BLOOD COUNT ABNORMAL [None]
  - DIARRHOEA [None]
  - DIVERTICULUM [None]
  - RECTAL HAEMORRHAGE [None]
